FAERS Safety Report 11545292 (Version 4)
Quarter: 2016Q1

REPORT INFORMATION
  Report Type: Spontaneous
  Country: US (occurrence: US)
  Receive Date: 20150924
  Receipt Date: 20160129
  Transmission Date: 20160525
  Serious: Yes (Hospitalization, Other)
  Sender: FDA-Public Use
  Company Number: US-BAXTER-2015BAX051692

PATIENT
  Sex: Male

DRUGS (1)
  1. DIANEAL LOW CALCIUM PERITONEAL DIALYSIS SOLUTION WITH DEXTROSE [Suspect]
     Active Substance: CALCIUM CHLORIDE\DEXTROSE\MAGNESIUM CHLORIDE\SODIUM CHLORIDE\SODIUM LACTATE
     Indication: PERITONEAL DIALYSIS
     Route: 033

REACTIONS (15)
  - Brain oedema [Not Recovered/Not Resolved]
  - Dysstasia [Unknown]
  - Application site burn [Unknown]
  - Electrolyte imbalance [Not Recovered/Not Resolved]
  - Peritoneal cloudy effluent [Not Recovered/Not Resolved]
  - Asthenia [Recovering/Resolving]
  - Muscle atrophy [Unknown]
  - Stupor [Not Recovered/Not Resolved]
  - Hypophagia [Recovering/Resolving]
  - Local swelling [Not Recovered/Not Resolved]
  - Fall [Unknown]
  - Brain injury [Not Recovered/Not Resolved]
  - Cerebrovascular accident [Not Recovered/Not Resolved]
  - Blood electrolytes decreased [Not Recovered/Not Resolved]
  - Drug dose omission [Recovering/Resolving]

NARRATIVE: CASE EVENT DATE: 201510
